FAERS Safety Report 14776038 (Version 1)
Quarter: 2018Q2

REPORT INFORMATION
  Report Type: Report from Study
  Country: JP (occurrence: JP)
  Receive Date: 20180418
  Receipt Date: 20180418
  Transmission Date: 20180711
  Serious: Yes (Death, Hospitalization, Other)
  Sender: FDA-Public Use
  Company Number: JP-MPIJNJ-2007_02330

PATIENT
  Age: 74 Year
  Sex: Male
  Weight: 46 kg

DRUGS (17)
  1. VELCADE [Suspect]
     Active Substance: BORTEZOMIB
     Dosage: 1 MG, UNK
     Route: 042
     Dates: start: 20070724, end: 20070828
  2. SOLITA T [Concomitant]
     Indication: PROPHYLAXIS
     Dosage: 500 ML, UNK
     Route: 065
     Dates: start: 20070219, end: 20070301
  3. LASIX [Concomitant]
     Active Substance: FUROSEMIDE
     Dosage: 10 MG, UNK
     Route: 042
     Dates: start: 20070221, end: 20070323
  4. DEXAMETHASONE. [Concomitant]
     Active Substance: DEXAMETHASONE
     Indication: PLASMA CELL MYELOMA
     Dosage: 8.00 MG, UNK
     Route: 042
     Dates: start: 20070529, end: 20070828
  5. ACICLOVIR [Concomitant]
     Active Substance: ACYCLOVIR
     Indication: PROPHYLAXIS
     Dosage: 200 MG, UNK
     Route: 048
     Dates: start: 20070515
  6. VELCADE [Suspect]
     Active Substance: BORTEZOMIB
     Dosage: 1.4 MG, UNK
     Route: 042
     Dates: start: 20070323, end: 20070529
  7. PROTECADIN                              /JPN/ [Concomitant]
     Indication: PROPHYLAXIS
     Dosage: 20.00 MG, UNK
     Route: 048
     Dates: start: 20070213
  8. SOLITA T [Concomitant]
     Dosage: 500 ML, UNK
     Route: 065
     Dates: start: 20070301, end: 20070301
  9. MEYLON [Concomitant]
     Active Substance: SODIUM BICARBONATE
     Indication: PROPHYLAXIS
     Dosage: 20.00 ML, UNK
     Route: 065
     Dates: start: 20070219, end: 20070226
  10. SAXIZON [Concomitant]
     Active Substance: HYDROCORTISONE SODIUM SUCCINATE
     Dosage: UNK
     Route: 042
  11. ALLOPURINOL. [Concomitant]
     Active Substance: ALLOPURINOL
     Indication: PROPHYLAXIS
     Dosage: 300.00 MG, UNK
     Dates: start: 20070216, end: 20070302
  12. PRIMPERAN [Concomitant]
     Active Substance: METOCLOPRAMIDE HYDROCHLORIDE
     Indication: CONSTIPATION
     Dosage: 10.00 MG, UNK
     Route: 065
     Dates: start: 20070220
  13. NAUZELIN [Concomitant]
     Active Substance: DOMPERIDONE
     Indication: VOMITING
     Dosage: 30 MG, UNK
     Route: 048
     Dates: start: 20070306, end: 20070405
  14. PURSENNID                          /00571902/ [Concomitant]
     Active Substance: SENNOSIDES A AND B
     Indication: VOMITING
     Dosage: 24.00 MG, UNK
     Route: 048
     Dates: start: 20070214, end: 20070408
  15. VELCADE [Suspect]
     Active Substance: BORTEZOMIB
     Indication: PLASMA CELL MYELOMA
     Dosage: 1.80 MG, UNK
     Route: 042
     Dates: start: 20070220, end: 20070302
  16. NIFEDIPINE. [Concomitant]
     Active Substance: NIFEDIPINE
     Indication: HYPERTENSION
     Dosage: 20.00 MG, UNK
     Route: 048
     Dates: start: 20070213
  17. AMIGRAND [Concomitant]
     Dosage: 500 ML, UNK
     Route: 042
     Dates: start: 20070303, end: 20070618

REACTIONS (10)
  - Pneumonia aspiration [Recovering/Resolving]
  - Dehydration [Unknown]
  - Disease progression [Fatal]
  - Hypokalaemia [Unknown]
  - Altered state of consciousness [Recovering/Resolving]
  - Diarrhoea [Recovered/Resolved]
  - Epilepsy [Unknown]
  - Plasma cell myeloma [Unknown]
  - Renal failure [Unknown]
  - Renal impairment [Unknown]

NARRATIVE: CASE EVENT DATE: 20070310
